FAERS Safety Report 6930559-1 (Version None)
Quarter: 2010Q3

REPORT INFORMATION
  Report Type: 
  Country: None (occurrence: None)
  Receive Date: 20100818
  Receipt Date: 20100810
  Transmission Date: 20110219
  Serious: Yes (Other)
  Sender: FDA-Public Use
  Company Number: B0667732A

PATIENT
  Sex: Female

DRUGS (10)
  1. AUGMENTIN '125' [Suspect]
     Indication: WOUND INFECTION
     Dosage: 3IUAX PER DAY
     Route: 048
     Dates: start: 20100716, end: 20100721
  2. RHEUMATREX [Concomitant]
     Indication: RHEUMATOID ARTHRITIS
     Route: 048
  3. PREDNISOLONE [Concomitant]
     Indication: RHEUMATOID ARTHRITIS
     Route: 065
  4. GENTAMICIN [Concomitant]
     Indication: WOUND INFECTION
     Route: 061
     Dates: start: 20100630, end: 20100721
  5. PL [Concomitant]
     Route: 061
     Dates: start: 20100630, end: 20100721
  6. VOLTAREN [Concomitant]
     Route: 061
  7. SELTOUCH [Concomitant]
     Route: 062
  8. FOLIAMIN [Concomitant]
     Route: 048
  9. SELBEX [Concomitant]
     Route: 048
  10. GASTER [Concomitant]

REACTIONS (2)
  - VISUAL ACUITY REDUCED [None]
  - VISUAL IMPAIRMENT [None]
